FAERS Safety Report 6245998-4 (Version None)
Quarter: 2009Q2

REPORT INFORMATION
  Report Type: 
  Country: None (occurrence: None)
  Receive Date: 20090626
  Receipt Date: 20081013
  Transmission Date: 20091009
  Serious: Yes (Other)
  Sender: FDA-Public Use
  Company Number: A0751781A

PATIENT
  Age: 45 Year
  Sex: Male

DRUGS (14)
  1. IMITREX [Suspect]
     Indication: MIGRAINE
     Dosage: 100MG TWICE PER DAY
     Route: 048
     Dates: start: 20060201
  2. IMITREX [Suspect]
     Dosage: 5MG THREE TIMES PER DAY
     Route: 045
     Dates: start: 20081012
  3. DARVON [Concomitant]
  4. ZYRTEC [Concomitant]
  5. PRILOSEC [Concomitant]
  6. PHENERGAN [Concomitant]
  7. ZOFRAN [Concomitant]
  8. ZOCOR [Concomitant]
  9. ZANTAC [Concomitant]
  10. TIZANIDINE [Concomitant]
  11. AMBIEN [Concomitant]
  12. PHRENILIN FORTE [Concomitant]
  13. TINCTURE OF OPIUM [Concomitant]
  14. VALIUM [Concomitant]

REACTIONS (2)
  - CONVULSION [None]
  - DRUG INEFFECTIVE [None]
